FAERS Safety Report 8263368-4 (Version None)
Quarter: 2012Q2

REPORT INFORMATION
  Report Type: 
  Country: None (occurrence: None)
  Receive Date: 20120405
  Receipt Date: 20120329
  Transmission Date: 20120825
  Serious: Yes (Hospitalization)
  Sender: FDA-Public Use
  Company Number: US-ABBOTT-12P-163-0892495-00

PATIENT
  Sex: Female
  Weight: 86.26 kg

DRUGS (3)
  1. HUMIRA [Suspect]
     Indication: RHEUMATOID ARTHRITIS
     Route: 058
     Dates: start: 20101001
  2. XANAX [Concomitant]
     Indication: INSOMNIA
  3. FEMALE HORMONE PATCH [Concomitant]
     Indication: HORMONE REPLACEMENT THERAPY

REACTIONS (16)
  - SJOGREN'S SYNDROME [None]
  - INFLAMMATION [None]
  - NAUSEA [None]
  - INJECTION SITE HAEMORRHAGE [None]
  - FLUID RETENTION [None]
  - INJECTION SITE HAEMATOMA [None]
  - DEVICE MALFUNCTION [None]
  - FAECAL INCONTINENCE [None]
  - INCORRECT DOSE ADMINISTERED [None]
  - NERVE COMPRESSION [None]
  - RHEUMATOID ARTHRITIS [None]
  - VASCULAR NEOPLASM [None]
  - INJECTION SITE PAIN [None]
  - DRY EYE [None]
  - MALAISE [None]
  - PAIN [None]
